FAERS Safety Report 9397647 (Version 2)
Quarter: 2013Q3

REPORT INFORMATION
  Report Type: Spontaneous
  Country: JP (occurrence: JP)
  Receive Date: 20130712
  Receipt Date: 20130805
  Transmission Date: 20140515
  Serious: Yes (Hospitalization)
  Sender: FDA-Public Use
  Company Number: JP-SANOFI-AVENTIS-2013SA068907

PATIENT
  Age: 50 Year
  Sex: Female
  Weight: 53.2 kg

DRUGS (5)
  1. APIDRA [Suspect]
     Indication: TYPE 2 DIABETES MELLITUS
     Dosage: DOSE:5U-2U-3U
     Route: 058
     Dates: start: 20121023
  2. LANTUS [Concomitant]
     Indication: TYPE 2 DIABETES MELLITUS
     Dosage: DOSE:5 UNIT(S)
     Route: 058
     Dates: start: 20121112, end: 20130110
  3. CALBLOCK [Concomitant]
     Route: 048
     Dates: start: 20121012, end: 20130110
  4. DIOVANE [Concomitant]
     Route: 048
     Dates: start: 20121102
  5. GLACTIV [Concomitant]
     Indication: TYPE 2 DIABETES MELLITUS
     Route: 048
     Dates: start: 20121012

REACTIONS (1)
  - Acute myeloid leukaemia [Recovering/Resolving]
